FAERS Safety Report 9214402 (Version 3)
Quarter: 2014Q1

REPORT INFORMATION
  Report Type: Spontaneous
  Country: US (occurrence: US)
  Receive Date: 20130405
  Receipt Date: 20140217
  Transmission Date: 20141002
  Serious: No
  Sender: FDA-Public Use
  Company Number: US-ASTRAZENECA-2013SE19849

PATIENT
  Age: 71 Year
  Sex: Female
  Weight: 49.9 kg

DRUGS (5)
  1. ATENOLOL [Suspect]
     Route: 048
  2. SYMBICORT [Suspect]
     Indication: ASTHMA
     Dosage: 80/4.5 MCG, 2 PUFFS BID
     Route: 055
     Dates: start: 20130209, end: 201307
  3. SYMBICORT [Suspect]
     Indication: ASTHMA
     Dosage: 80/4.5 MCG, 2 PUFFS BID
     Route: 055
     Dates: start: 20130304
  4. SYMBICORT [Suspect]
     Indication: ASTHMA
     Dosage: 80/4.5 MCG, 1 PUFF BID
     Route: 055
     Dates: start: 201307, end: 201307
  5. SYMBICORT [Suspect]
     Indication: ASTHMA
     Dosage: 80/4.5 MCG, 2 PUFFS BID
     Route: 055
     Dates: start: 201307

REACTIONS (10)
  - Respiratory moniliasis [Unknown]
  - Influenza [Unknown]
  - Dysphonia [Unknown]
  - Throat irritation [Unknown]
  - Cough [Unknown]
  - Increased bronchial secretion [Unknown]
  - Asthma [Unknown]
  - Asthma [Unknown]
  - Intentional drug misuse [Unknown]
  - Intentional drug misuse [Unknown]
